FAERS Safety Report 7687118-5 (Version None)
Quarter: 2011Q3

REPORT INFORMATION
  Report Type: 
  Country: None (occurrence: None)
  Receive Date: 20110816
  Receipt Date: 20110804
  Transmission Date: 20111222
  Serious: Yes (Other)
  Sender: FDA-Public Use
  Company Number: PHEH2011US00489

PATIENT
  Sex: Female

DRUGS (3)
  1. AREDIA [Suspect]
     Indication: BONE LOSS
  2. AREDIA [Suspect]
     Indication: OSTEOPOROSIS
     Dosage: 90 MG, QMO
     Dates: start: 20040101, end: 20060101
  3. ARIMIDEX [Concomitant]

REACTIONS (13)
  - ILEUS PARALYTIC [None]
  - DEPRESSION [None]
  - LENTIGO [None]
  - RIB FRACTURE [None]
  - FIBROUS HISTIOCYTOMA [None]
  - BONE LESION [None]
  - ABDOMINAL HERNIA [None]
  - SMALL INTESTINAL OBSTRUCTION [None]
  - NEOPLASM MALIGNANT [None]
  - CONSTIPATION [None]
  - NEOPLASM PROGRESSION [None]
  - OSTEOLYSIS [None]
  - METASTASES TO SPINE [None]
